FAERS Safety Report 6130114-X (Version None)
Quarter: 2009Q1

REPORT INFORMATION
  Report Type: 
  Country: None (occurrence: None)
  Receive Date: 20090324
  Receipt Date: 20090316
  Transmission Date: 20090719
  Serious: Yes (Other)
  Sender: FDA-Public Use
  Company Number: PHHY2008JP28307

PATIENT

DRUGS (2)
  1. GLEEVEC [Suspect]
     Indication: CHRONIC MYELOID LEUKAEMIA
     Dosage: 400MG DAILY
     Route: 048
     Dates: start: 20080101, end: 20081101
  2. GLEEVEC [Suspect]
     Dosage: 200MG DAILY
     Route: 048
     Dates: start: 20081201

REACTIONS (2)
  - EYE HAEMORRHAGE [None]
  - MYODESOPSIA [None]
